FAERS Safety Report 7452377-0 (Version None)
Quarter: 2011Q2

REPORT INFORMATION
  Report Type: 
  Country: None (occurrence: None)
  Receive Date: 20110425
  Receipt Date: 20110408
  Transmission Date: 20111010
  Serious: Yes (Other)
  Sender: FDA-Public Use
  Company Number: 2011MA003757

PATIENT
  Sex: Male

DRUGS (2)
  1. LAMOTRIGINE [Suspect]
     Indication: EPILEPSY
     Dosage: 25 MG
  2. FEVERALL [Suspect]
     Indication: HEADACHE
     Dosage: 500 MG;BID
     Route: 054
     Dates: start: 20110403, end: 20110404

REACTIONS (1)
  - CONVULSION [None]
